FAERS Safety Report 9962891 (Version 2)
Quarter: 2014Q1

REPORT INFORMATION
  Report Type: Report from Study
  Country: US (occurrence: US)
  Receive Date: 20140305
  Receipt Date: 20140305
  Transmission Date: 20141002
  Serious: No
  Sender: FDA-Public Use
  Company Number: US-ABBVIE-13P-163-1103365-00

PATIENT
  Age: 66 Year
  Sex: Female
  Weight: 68.1 kg

DRUGS (14)
  1. HUMIRA [Suspect]
     Indication: RHEUMATOID ARTHRITIS
     Route: 058
     Dates: start: 2010
  2. HYDROCODONE [Suspect]
     Indication: ARTHRALGIA
     Route: 048
     Dates: start: 2012, end: 2013
  3. HYDROCODONE [Suspect]
     Route: 048
     Dates: start: 2013
  4. AMLODIPINE BENZOATE [Concomitant]
     Indication: HYPERTENSION
     Route: 048
  5. SIMVASTATIN [Concomitant]
     Indication: HYPERCHOLESTEROLAEMIA
     Route: 048
  6. CYMBALTA [Concomitant]
     Indication: DEPRESSION
     Dosage: IN EVENING
     Route: 048
  7. CYMBALTA [Concomitant]
     Indication: RHEUMATOID ARTHRITIS
  8. OMEPRAZOLE [Concomitant]
     Indication: GASTROOESOPHAGEAL REFLUX DISEASE
     Route: 048
  9. PROBIOTICS WITH FIBER [Concomitant]
     Indication: BOWEL MOVEMENT IRREGULARITY
     Route: 048
  10. VITAMIN B12 [Concomitant]
     Indication: ASTHENIA
     Route: 030
  11. ALPRAZOLAM [Concomitant]
     Indication: STRESS
     Dosage: AT BEDTIME
     Route: 048
  12. ALPRAZOLAM [Concomitant]
     Indication: ANXIETY
  13. CELEBREX [Concomitant]
     Indication: ARTHRALGIA
     Route: 048
  14. CELEBREX [Concomitant]
     Indication: RHEUMATOID ARTHRITIS

REACTIONS (7)
  - Gastric hypomotility [Not Recovered/Not Resolved]
  - Hiatus hernia [Not Recovered/Not Resolved]
  - Aphagia [Not Recovered/Not Resolved]
  - Dysphagia [Not Recovered/Not Resolved]
  - Weight increased [Not Recovered/Not Resolved]
  - Rheumatoid arthritis [Recovering/Resolving]
  - Arthralgia [Not Recovered/Not Resolved]
